FAERS Safety Report 7945501-4 (Version None)
Quarter: 2011Q4

REPORT INFORMATION
  Report Type: 
  Country: None (occurrence: None)
  Receive Date: 20111129
  Receipt Date: 20111128
  Transmission Date: 20120403
  Serious: Yes (Death, Other)
  Sender: FDA-Public Use
  Company Number: US-PFIZER INC-2010125268

PATIENT
  Sex: Male
  Weight: 136 kg

DRUGS (10)
  1. SUTENT [Suspect]
     Dosage: 50 MG, DAILY, 4 WEEKS ON 2 WEEKS
     Route: 048
     Dates: start: 20101028
  2. SUTENT [Suspect]
     Dosage: UNK
     Route: 048
     Dates: start: 20101213
  3. TOPROL-XL [Concomitant]
     Dosage: 100 MG, UNK
  4. SUTENT [Suspect]
     Dosage: 50 MG, DAILY, 4 WEEKS ON 2 WEEKS
     Route: 048
     Dates: start: 20101101
  5. ACTOS [Concomitant]
     Dosage: 45 MG, 1X/DAY
  6. TERAZOSIN [Concomitant]
     Dosage: 10 MG, 1X/DAY
  7. SUTENT [Suspect]
     Dosage: UNK
     Route: 048
     Dates: start: 20110307
  8. SUTENT [Suspect]
     Indication: METASTATIC RENAL CELL CARCINOMA
     Dosage: 50 MG, DAILY, 4 WEEKS ON 2 WEEKS
     Route: 048
     Dates: start: 20100924, end: 20101011
  9. WARFARIN [Concomitant]
     Dosage: UNK
  10. GLIPIZIDE [Concomitant]
     Dosage: 5 MG, 2X/DAY

REACTIONS (6)
  - DISEASE PROGRESSION [None]
  - VISION BLURRED [None]
  - WHITE BLOOD CELL COUNT DECREASED [None]
  - FAECES DISCOLOURED [None]
  - METASTATIC RENAL CELL CARCINOMA [None]
  - HYPOGLYCAEMIA [None]
